FAERS Safety Report 14650175 (Version 1)
Quarter: 2018Q1

REPORT INFORMATION
  Report Type: Spontaneous
  Country: BR (occurrence: BR)
  Receive Date: 20180316
  Receipt Date: 20180316
  Transmission Date: 20180509
  Serious: Yes (Death)
  Sender: FDA-Public Use
  Company Number: BR-BAYER-2018-049187

PATIENT
  Age: 72 Year
  Sex: Female

DRUGS (1)
  1. ASPIRINA 100 MG [Suspect]
     Active Substance: ASPIRIN
     Indication: CORONARY ARTERY DISEASE
     Dosage: 100 MG, QD (AFTER LUNCH)
     Route: 048
     Dates: start: 20170911

REACTIONS (7)
  - Ischaemic stroke [Fatal]
  - Tremor [Fatal]
  - Vertigo [Fatal]
  - Vomiting [Fatal]
  - Asthenia [Fatal]
  - Aphasia [Fatal]
  - Moaning [Fatal]

NARRATIVE: CASE EVENT DATE: 20180301
